FAERS Safety Report 8537022-5 (Version None)
Quarter: 2012Q3

REPORT INFORMATION
  Report Type: 
  Country: None (occurrence: None)
  Receive Date: 20120718
  Receipt Date: 20120718
  Transmission Date: 20120928
  Serious: No
  Sender: FDA-Public Use
  Company Number: None

PATIENT
  Age: 52 Year
  Sex: Male

DRUGS (2)
  1. PEGASYS [Suspect]
     Indication: HEPATITIS C
     Dosage: 180 MCG QW SQ
     Route: 058
     Dates: start: 20111210, end: 20120621
  2. RIBAVIRIN 200 MG SANDOZ 400 MG BID PO [Suspect]
     Indication: HEPATITIS C
     Dosage: 400 MG BID  PO
     Route: 048
     Dates: start: 20111210, end: 20120701

REACTIONS (2)
  - ANAEMIA [None]
  - WEIGHT DECREASED [None]
